FAERS Safety Report 5032828-1 (Version None)
Quarter: 2006Q2

REPORT INFORMATION
  Report Type: 
  Country: None (occurrence: None)
  Receive Date: 20060620
  Receipt Date: 20060608
  Transmission Date: 20061013
  Serious: Yes (Hospitalization)
  Sender: FDA-Public Use
  Company Number: 2006BI007221

PATIENT
  Age: 65 Year
  Sex: Female

DRUGS (10)
  1. AVONEX [Suspect]
     Indication: MULTIPLE SCLEROSIS
     Dosage: 30 UG; QW; IM
     Route: 030
     Dates: start: 19961001, end: 20030801
  2. AVONEX [Suspect]
     Indication: MULTIPLE SCLEROSIS
     Dosage: 30 UG; QW; IM
     Route: 030
     Dates: start: 20030801
  3. BACLOFEN [Concomitant]
  4. DETROL LA [Concomitant]
  5. PAXIL [Concomitant]
  6. NEURONTIN [Concomitant]
  7. TOPAMAX [Concomitant]
  8. INDERAL [Concomitant]
  9. CARDIZEM CD [Concomitant]
  10. ALTRACE [Concomitant]

REACTIONS (3)
  - MITRAL VALVE PROLAPSE [None]
  - MYOCARDIAL INFARCTION [None]
  - PERICARDITIS [None]
